FAERS Safety Report 24323137 (Version 1)
Quarter: 2024Q3

REPORT INFORMATION
  Report Type: Spontaneous
  Country: US (occurrence: None)
  Receive Date: 20240914
  Receipt Date: 20240914
  Transmission Date: 20241017
  Serious: Yes (Other)
  Sender: Public
  Company Number: None

PATIENT
  Age: 45 Year
  Sex: Female

DRUGS (3)
  1. DUPIXENT [Suspect]
     Active Substance: DUPILUMAB
     Indication: Dermatitis atopic
     Dosage: 300 MG ONCE EVERY 2 WEEKS ?
     Route: 058
     Dates: start: 20170608
  2. Hydrocortisone 1% topical cream [Concomitant]
  3. ZYRTEC [Concomitant]
     Active Substance: CETIRIZINE HYDROCHLORIDE

REACTIONS (5)
  - Erythema [None]
  - Skin exfoliation [None]
  - Facial pain [None]
  - Pruritus [None]
  - Dermatitis atopic [None]

NARRATIVE: CASE EVENT DATE: 20170907
